FAERS Safety Report 14545407 (Version 1)
Quarter: 2018Q1

REPORT INFORMATION
  Report Type: Spontaneous
  Country: HU (occurrence: HU)
  Receive Date: 20180219
  Receipt Date: 20180219
  Transmission Date: 20180509
  Serious: Yes (Hospitalization, Other)
  Sender: FDA-Public Use
  Company Number: PHHY2018HU022399

PATIENT
  Age: 66 Year
  Sex: Male

DRUGS (3)
  1. GLIMEPIRIDE. [Suspect]
     Active Substance: GLIMEPIRIDE
     Indication: TYPE 2 DIABETES MELLITUS
     Dosage: 4 MG, UNK
     Route: 065
     Dates: start: 2016
  2. DAPAGLIFLOZIN. [Suspect]
     Active Substance: DAPAGLIFLOZIN
     Indication: TYPE 2 DIABETES MELLITUS
     Dosage: 10 MG, QD
     Route: 065
  3. METFORMIN [Suspect]
     Active Substance: METFORMIN HYDROCHLORIDE
     Indication: TYPE 2 DIABETES MELLITUS
     Dosage: 2000 MG, QD
     Route: 065
     Dates: start: 2016

REACTIONS (4)
  - Acute coronary syndrome [Recovered/Resolved]
  - Drug ineffective [Unknown]
  - Hypoglycaemia [Recovered/Resolved]
  - Carbohydrate metabolism disorder [Recovered/Resolved]
